FAERS Safety Report 9991757 (Version 1)
Quarter: 2014Q1

REPORT INFORMATION
  Report Type: Spontaneous
  Country: US (occurrence: US)
  Receive Date: 20140310
  Receipt Date: 20140310
  Transmission Date: 20141002
  Serious: No
  Sender: FDA-Public Use
  Company Number: US-JNJFOC-20140206174

PATIENT
  Age: 32 Year
  Sex: Female
  Weight: 58.97 kg

DRUGS (5)
  1. INVEGA SUSTENNA [Suspect]
     Indication: SCHIZOPHRENIA
     Route: 030
     Dates: start: 20140110
  2. INVEGA SUSTENNA [Suspect]
     Indication: SCHIZOPHRENIA
     Route: 030
     Dates: start: 20140103
  3. INVEGA SUSTENNA [Suspect]
     Indication: SCHIZOPHRENIA
     Route: 030
     Dates: start: 2014
  4. PROZAC [Concomitant]
     Indication: DEPRESSION
     Route: 048
  5. AMANTADINE [Concomitant]
     Indication: DEPRESSION
     Route: 048

REACTIONS (1)
  - Injection site nodule [Not Recovered/Not Resolved]
